FAERS Safety Report 9565124 (Version 1)
Quarter: 2013Q3

REPORT INFORMATION
  Report Type: Spontaneous
  Country: CA (occurrence: CA)
  Receive Date: 20130930
  Receipt Date: 20130930
  Transmission Date: 20140515
  Serious: Yes (Other)
  Sender: FDA-Public Use
  Company Number: CA-PFIZER INC-2013276927

PATIENT
  Sex: 0

DRUGS (2)
  1. PRISTIQ [Suspect]
     Dosage: UNK
  2. EFFEXOR [Suspect]
     Dosage: UNK

REACTIONS (1)
  - Suicidal ideation [Unknown]
